FAERS Safety Report 5867223-6 (Version None)
Quarter: 2008Q3

REPORT INFORMATION
  Report Type: 
  Country: None (occurrence: None)
  Receive Date: 20080829
  Receipt Date: 20080829
  Transmission Date: 20090109
  Serious: Yes (Other)
  Sender: FDA-Public Use
  Company Number: None

PATIENT
  Age: 41 Year
  Sex: Male
  Weight: 94.8018 kg

DRUGS (1)
  1. ENBREL [Suspect]
     Indication: RHEUMATOID ARTHRITIS
     Dosage: 40MG ONCE A WEEK SQ
     Route: 058
     Dates: start: 20060601, end: 20080615

REACTIONS (4)
  - LEUKOPENIA [None]
  - LYMPHOCYTE MORPHOLOGY ABNORMAL [None]
  - LYMPHOPENIA [None]
  - NEUTROPHIL COUNT DECREASED [None]
